FAERS Safety Report 8150137-9 (Version None)
Quarter: 2012Q1

REPORT INFORMATION
  Report Type: 
  Country: None (occurrence: None)
  Receive Date: 20120220
  Receipt Date: 20120210
  Transmission Date: 20120608
  Serious: No
  Sender: FDA-Public Use
  Company Number: US-BIOGENIDEC-2011BI008216

PATIENT
  Sex: Female

DRUGS (1)
  1. AVONEX [Suspect]
     Indication: MULTIPLE SCLEROSIS
     Route: 030
     Dates: start: 20020820

REACTIONS (7)
  - TEMPERATURE INTOLERANCE [None]
  - PAIN [None]
  - INFLUENZA LIKE ILLNESS [None]
  - DRUG INTOLERANCE [None]
  - GENERAL SYMPTOM [None]
  - MUSCULAR WEAKNESS [None]
  - GAIT DISTURBANCE [None]
